FAERS Safety Report 4309886-2 (Version None)
Quarter: 2004Q1

REPORT INFORMATION
  Report Type: 
  Country: None (occurrence: None)
  Receive Date: 20040303
  Receipt Date: 20040114
  Transmission Date: 20041129
  Serious: No
  Sender: FDA-Public Use
  Company Number: US-BRISTOL-MYERS SQUIBB COMPANY-12479242

PATIENT
  Age: 51 Year
  Sex: Female

DRUGS (3)
  1. ABILIFY [Suspect]
     Indication: SCHIZOPHRENIA
     Route: 048
     Dates: start: 20031020
  2. LEXAPRO [Concomitant]
  3. BENADRYL [Concomitant]

REACTIONS (4)
  - AKATHISIA [None]
  - ANXIETY [None]
  - FEELING JITTERY [None]
  - RESTLESSNESS [None]
